FAERS Safety Report 7276362-7 (Version None)
Quarter: 2011Q1

REPORT INFORMATION
  Report Type: 
  Country: None (occurrence: None)
  Receive Date: 20110204
  Receipt Date: 20110125
  Transmission Date: 20110831
  Serious: No
  Sender: FDA-Public Use
  Company Number: US-PURDUE-USA-2010-0048813

PATIENT
  Age: 63 Year
  Sex: Female
  Weight: 95.238 kg

DRUGS (5)
  1. STEROID ANTIBACTERIALS [Concomitant]
     Indication: BRONCHITIS
     Dosage: UNK
  2. MS CONTIN TABLETS 100 MG [Suspect]
     Indication: SURGERY
  3. MS CONTIN TABLETS 100 MG [Suspect]
     Indication: PAIN IN EXTREMITY
  4. AZITHROMYCIN [Suspect]
     Indication: PRODUCT USED FOR UNKNOWN INDICATION
     Dosage: UNK
  5. MS CONTIN TABLETS 100 MG [Suspect]
     Indication: BACK PAIN
     Dosage: 800 MG, DAILY

REACTIONS (9)
  - GASTROOESOPHAGEAL REFLUX DISEASE [None]
  - SOMNOLENCE [None]
  - OEDEMA PERIPHERAL [None]
  - PRODUCT QUALITY ISSUE [None]
  - HYPOTENSION [None]
  - GAIT DISTURBANCE [None]
  - NAUSEA [None]
  - ASTHENIA [None]
  - DIZZINESS [None]
